FAERS Safety Report 21990583 (Version 1)
Quarter: 2023Q1

REPORT INFORMATION
  Report Type: Spontaneous
  Country: US (occurrence: US)
  Receive Date: 20230214
  Receipt Date: 20230214
  Transmission Date: 20230418
  Serious: No
  Sender: FDA-Public Use
  Company Number: US-PFIZER INC-2020483802

PATIENT
  Age: 77 Year
  Sex: Male
  Weight: 97.52 kg

DRUGS (1)
  1. IBRANCE [Suspect]
     Active Substance: PALBOCICLIB
     Indication: Breast cancer metastatic
     Dosage: 125 MG, DAILY, 28 DAY SUPPLY

REACTIONS (2)
  - Product dose omission issue [Unknown]
  - Neoplasm progression [Unknown]
